FAERS Safety Report 10967500 (Version 4)
Quarter: 2016Q3

REPORT INFORMATION
  Report Type: Spontaneous
  Country: US (occurrence: US)
  Receive Date: 20150330
  Receipt Date: 20160726
  Transmission Date: 20161109
  Serious: Yes (Hospitalization, Other)
  Sender: FDA-Public Use
  Company Number: US-PFIZER INC-2015107961

PATIENT
  Age: 58 Year
  Sex: Female

DRUGS (24)
  1. XANAX [Concomitant]
     Active Substance: ALPRAZOLAM
     Dosage: 3 MG, UNK
  2. LIDODERM [Concomitant]
     Active Substance: LIDOCAINE
     Dosage: 5 %, UNK
  3. PREDNISONE. [Concomitant]
     Active Substance: PREDNISONE
     Dosage: 5 MG, UNK
  4. METFORMIN [Concomitant]
     Active Substance: METFORMIN HYDROCHLORIDE
     Dosage: UNK
  5. TOPROL XL [Concomitant]
     Active Substance: METOPROLOL SUCCINATE
     Dosage: 200 MG, UNK
  6. CYCLOBENZAPRINE HCL [Concomitant]
     Active Substance: CYCLOBENZAPRINE HYDROCHLORIDE
     Dosage: 5 MG, UNK
  7. XELJANZ [Suspect]
     Active Substance: TOFACITINIB CITRATE
     Dosage: 5 MG, 2X/DAY
     Route: 048
     Dates: start: 20160127
  8. FLONASE [Concomitant]
     Active Substance: FLUTICASONE PROPIONATE
     Dosage: 50 UG, UNK
  9. TRAZODONE [Concomitant]
     Active Substance: TRAZODONE HYDROCHLORIDE
     Dosage: 300 MG, UNK
  10. XELJANZ [Suspect]
     Active Substance: TOFACITINIB CITRATE
     Indication: RHEUMATOID ARTHRITIS
     Dosage: 5 MG, 2X/DAY
     Route: 048
     Dates: start: 201503, end: 201507
  11. XELJANZ [Suspect]
     Active Substance: TOFACITINIB CITRATE
     Dosage: 5 MG, 2X/DAY
     Route: 048
     Dates: start: 20160206
  12. NTG [Concomitant]
     Active Substance: NITROGLYCERIN
     Dosage: 400 UG, UNK
  13. LYRICA [Concomitant]
     Active Substance: PREGABALIN
     Dosage: 50 MG, UNK
  14. ALBUTEROL. [Concomitant]
     Active Substance: ALBUTEROL
     Dosage: UNK
  15. FLEXERIL [Concomitant]
     Active Substance: CYCLOBENZAPRINE HYDROCHLORIDE
     Dosage: UNK
  16. METFORMIN HCL PFIZER [Concomitant]
     Dosage: 500 MG, UNK
  17. ZOCOR [Concomitant]
     Active Substance: SIMVASTATIN
     Dosage: 80 MG, UNK
  18. NORVASC [Concomitant]
     Active Substance: AMLODIPINE BESYLATE
     Dosage: 2.5 MG, UNK
  19. POTASSIUM [Concomitant]
     Active Substance: POTASSIUM
     Dosage: UNK
  20. HYDROCHLOROTHIAZIDE. [Concomitant]
     Active Substance: HYDROCHLOROTHIAZIDE
     Dosage: UNK
  21. O2 [Concomitant]
     Dosage: UNK
  22. ZYRTEC [Concomitant]
     Active Substance: CETIRIZINE HYDROCHLORIDE
     Dosage: 10 MG, UNK
  23. PROAIR HFA [Concomitant]
     Active Substance: ALBUTEROL SULFATE
     Dosage: UNK
  24. VITAMIN D [Concomitant]
     Active Substance: CHOLECALCIFEROL
     Dosage: UNK

REACTIONS (23)
  - Thyroid disorder [Unknown]
  - Arthralgia [Unknown]
  - Mood swings [Unknown]
  - Sinusitis [Unknown]
  - Confusional state [Unknown]
  - Pruritus [Unknown]
  - Oesophageal spasm [Unknown]
  - Swelling [Unknown]
  - Abdominal distension [Unknown]
  - Back pain [Unknown]
  - Fluid retention [Unknown]
  - Influenza [Unknown]
  - Headache [Unknown]
  - Pain [Unknown]
  - Rheumatoid arthritis [Unknown]
  - Coeliac disease [Unknown]
  - Crying [Unknown]
  - Fatigue [Unknown]
  - Walking aid user [Unknown]
  - Nephrolithiasis [Unknown]
  - Condition aggravated [Unknown]
  - Fall [Unknown]
  - Weight increased [Unknown]

NARRATIVE: CASE EVENT DATE: 201601
